FAERS Safety Report 20279032 (Version 3)
Quarter: 2022Q2

REPORT INFORMATION
  Report Type: Report from Study
  Country: IT (occurrence: IT)
  Receive Date: 20220103
  Receipt Date: 20220610
  Transmission Date: 20220720
  Serious: Yes (Life-Threatening)
  Sender: FDA-Public Use
  Company Number: IT-CELLTRION INC.-2021IT017820

PATIENT

DRUGS (8)
  1. TRUXIMA [Suspect]
     Active Substance: RITUXIMAB-ABBS
     Indication: Diffuse large B-cell lymphoma
     Dosage: 649 MG, 1 CYCLE
     Route: 042
     Dates: start: 20211019, end: 20211019
  2. LEVOTHYROXINE SODIUM [Concomitant]
     Active Substance: LEVOTHYROXINE SODIUM
  3. PAROXETINE HYDROCHLORIDE [Concomitant]
     Active Substance: PAROXETINE HYDROCHLORIDE
  4. HYDROCHLOROTHIAZIDE\OLMESARTAN MEDOXOMIL [Concomitant]
     Active Substance: HYDROCHLOROTHIAZIDE\OLMESARTAN MEDOXOMIL
  5. LUCEN [ESOMEPRAZOLE MAGNESIUM] [Concomitant]
  6. ASPIRIN [Concomitant]
     Active Substance: ASPIRIN
  7. XANAX [Concomitant]
     Active Substance: ALPRAZOLAM
  8. EZATEROS [Concomitant]

REACTIONS (3)
  - Presyncope [Recovered/Resolved]
  - Infusion related reaction [Recovered/Resolved]
  - Underdose [Unknown]

NARRATIVE: CASE EVENT DATE: 20211019
